FAERS Safety Report 7890634 (Version 6)
Quarter: 2012Q4

REPORT INFORMATION
  Report Type: 
  Country: US (occurrence: US)
  Receive Date: 20110408
  Receipt Date: 20121105
  Transmission Date: 20130627
  Serious: Yes (Hospitalization)
  Sender: FDA-Public Use
  Company Number: US-JNJFOC-20110312765

PATIENT
  Sex: Female

DRUGS (29)
  1. UNSPECIFIED FENTANYL TRANSDERMAL SYSTEM [Suspect]
     Indication: PAIN
     Route: 062
     Dates: start: 201103, end: 201103
  2. DURAGESIC [Suspect]
     Indication: FIBROMYALGIA
     Route: 062
  3. DURAGESIC [Suspect]
     Indication: FIBROMYALGIA
     Route: 062
  4. DURAGESIC [Suspect]
     Indication: FIBROMYALGIA
     Route: 062
  5. DURAGESIC [Suspect]
     Indication: FIBROMYALGIA
     Route: 062
     Dates: start: 2012, end: 2012
  6. DURAGESIC [Suspect]
     Indication: FIBROMYALGIA
     Route: 062
     Dates: start: 2012, end: 2012
  7. DURAGESIC [Suspect]
     Indication: FIBROMYALGIA
     Route: 062
     Dates: start: 2012
  8. DURAGESIC [Suspect]
     Indication: FIBROMYALGIA
     Route: 062
  9. DURAGESIC [Suspect]
     Indication: PAIN
     Route: 062
     Dates: start: 2012, end: 2012
  10. DURAGESIC [Suspect]
     Indication: PAIN
     Route: 062
     Dates: start: 2012
  11. DURAGESIC [Suspect]
     Indication: PAIN
     Route: 062
     Dates: start: 2012, end: 2012
  12. DURAGESIC [Suspect]
     Indication: PAIN
     Route: 062
  13. FENTANYL TRANSDERMAL SYSTEM [Suspect]
     Indication: FIBROMYALGIA
     Route: 062
  14. ATENOLOL [Concomitant]
     Indication: PRODUCT USED FOR UNKNOWN INDICATION
     Route: 065
  15. PROTONIX [Concomitant]
     Indication: PRODUCT USED FOR UNKNOWN INDICATION
     Route: 065
  16. PREMARIN [Concomitant]
     Indication: PRODUCT USED FOR UNKNOWN INDICATION
     Route: 065
  17. MARINOL [Concomitant]
     Indication: PRODUCT USED FOR UNKNOWN INDICATION
     Route: 065
  18. SYNTHROID [Concomitant]
     Indication: PRODUCT USED FOR UNKNOWN INDICATION
     Dosage: eevry day morning
     Route: 065
  19. FOLIC ACID [Concomitant]
     Indication: PRODUCT USED FOR UNKNOWN INDICATION
     Dosage: eevry day morning
     Route: 065
  20. AMBIEN [Concomitant]
     Indication: PRODUCT USED FOR UNKNOWN INDICATION
     Dosage: eevry day morning
     Route: 065
  21. VITAMIN B12 [Concomitant]
     Indication: PRODUCT USED FOR UNKNOWN INDICATION
     Dosage: each visit
     Route: 065
  22. OXYCODONE [Concomitant]
     Indication: PRODUCT USED FOR UNKNOWN INDICATION
     Dosage: each visit
     Route: 065
  23. XANAX [Concomitant]
     Indication: PRODUCT USED FOR UNKNOWN INDICATION
     Dosage: each visit
     Route: 065
  24. HYDROCHLOROTHIAZIDE [Concomitant]
     Indication: PRODUCT USED FOR UNKNOWN INDICATION
     Dosage: each visit
     Route: 065
  25. VESICARE [Concomitant]
     Indication: PRODUCT USED FOR UNKNOWN INDICATION
     Dosage: 2-3 times A WEEK
     Route: 065
  26. PROTOPIC [Concomitant]
     Indication: PRODUCT USED FOR UNKNOWN INDICATION
     Dosage: twice daily or as needed
     Route: 065
  27. CLOBETASOL [Concomitant]
     Indication: PRODUCT USED FOR UNKNOWN INDICATION
     Dosage: twice daily or as needed
     Route: 065
  28. CREON [Concomitant]
     Indication: PRODUCT USED FOR UNKNOWN INDICATION
     Dosage: 24,000 units, twice daily or as needed
     Route: 065
  29. CETAPHIL CREAM [Concomitant]
     Indication: PRODUCT USED FOR UNKNOWN INDICATION
     Dosage: twice daily or as needed
     Route: 065

REACTIONS (13)
  - Condition aggravated [Unknown]
  - Adverse drug reaction [Unknown]
  - Insomnia [Unknown]
  - Product quality issue [Unknown]
  - Malaise [Not Recovered/Not Resolved]
  - Drug ineffective [Not Recovered/Not Resolved]
  - Inappropriate schedule of drug administration [Not Recovered/Not Resolved]
  - Wrong technique in drug usage process [Not Recovered/Not Resolved]
  - Wrong technique in drug usage process [Not Recovered/Not Resolved]
  - Product quality issue [Unknown]
  - Wrong technique in drug usage process [Unknown]
  - Hyperhidrosis [Unknown]
  - Product quality issue [Unknown]
